FAERS Safety Report 5896585 (Version 3)
Quarter: 2022Q4

REPORT INFORMATION
  Report Type: Spontaneous
  Country: GR (occurrence: US)
  Receive Date: 20051011
  Receipt Date: 20221011
  Transmission Date: 20230112
  Serious: Yes (Life-Threatening, Hospitalization, Other)
  Sender: FDA-Public Use
  Company Number: 200518760GDDC

PATIENT
  Age: 71 Year
  Sex: Female

DRUGS (6)
  1. METRONIDAZOLE [Interacting]
     Active Substance: METRONIDAZOLE
     Indication: Pseudomembranous colitis
     Dosage: 500 MG,TID
     Route: 048
  2. METRONIDAZOLE [Interacting]
     Active Substance: METRONIDAZOLE
     Indication: Clostridium colitis
  3. AMIODARONE HYDROCHLORIDE [Suspect]
     Active Substance: AMIODARONE HYDROCHLORIDE
     Indication: Atrial fibrillation
     Dosage: 450 MG, 1X
  4. AMIODARONE HYDROCHLORIDE [Suspect]
     Active Substance: AMIODARONE HYDROCHLORIDE
     Indication: Pseudomembranous colitis
     Dosage: 900 MG, QD
  5. AMIODARONE HYDROCHLORIDE [Suspect]
     Active Substance: AMIODARONE HYDROCHLORIDE
     Indication: Clostridium colitis
  6. AMIODARONE HYDROCHLORIDE [Suspect]
     Active Substance: AMIODARONE HYDROCHLORIDE
     Indication: Arrhythmia

REACTIONS (8)
  - Torsade de pointes [Recovered/Resolved]
  - Electrocardiogram QT prolonged [Recovered/Resolved]
  - Drug interaction [Recovered/Resolved]
  - Cardiac arrest [Recovered/Resolved]
  - Tricuspid valve incompetence [Unknown]
  - Mitral valve incompetence [Unknown]
  - Atrial fibrillation [Unknown]
  - Ventricular tachycardia [Unknown]
